FAERS Safety Report 20028827 (Version 1)
Quarter: 2021Q4

REPORT INFORMATION
  Report Type: Report from Study
  Country: AU (occurrence: None)
  Receive Date: 20211103
  Receipt Date: 20211103
  Transmission Date: 20220303
  Serious: Yes (Death)
  Sender: FDA-Public Use
  Company Number: 2021A790279

PATIENT
  Age: 22726 Day
  Sex: Female

DRUGS (2)
  1. OLAPARIB [Suspect]
     Active Substance: OLAPARIB
     Indication: Cholangiocarcinoma
     Route: 048
     Dates: start: 20210705
  2. OLAPARIB [Suspect]
     Active Substance: OLAPARIB
     Indication: HRD gene mutation assay
     Route: 048
     Dates: start: 20210705

REACTIONS (1)
  - Death [Fatal]

NARRATIVE: CASE EVENT DATE: 20210723
